FAERS Safety Report 11975688 (Version 2)
Quarter: 2016Q1

REPORT INFORMATION
  Report Type: Spontaneous
  Country: US (occurrence: US)
  Receive Date: 20160129
  Receipt Date: 20160324
  Transmission Date: 20160526
  Serious: No
  Sender: FDA-Public Use
  Company Number: PHEH2016US002099

PATIENT
  Age: 73 Year
  Sex: Male
  Weight: 84 kg

DRUGS (8)
  1. SPIRONOLACTONE. [Concomitant]
     Active Substance: SPIRONOLACTONE
     Indication: CARDIAC FAILURE
     Dosage: UNK UNK, QD
     Route: 048
  2. DIOVAN [Concomitant]
     Active Substance: VALSARTAN
     Indication: CARDIAC FAILURE
     Dosage: UNK UNK, QD
     Route: 048
     Dates: start: 20160113
  3. FLOMAX RELIEF [Concomitant]
     Active Substance: TAMSULOSIN HYDROCHLORIDE
     Indication: PRODUCT USED FOR UNKNOWN INDICATION
     Dosage: UNK UNK, QD
     Route: 048
  4. BRILINTA [Concomitant]
     Active Substance: TICAGRELOR
     Indication: CORONARY ARTERY DISEASE
     Dosage: UNK UNK, BID
     Route: 048
  5. ENTRESTO [Suspect]
     Active Substance: SACUBITRIL\VALSARTAN
     Indication: CARDIOMYOPATHY
  6. ATORVASTATIN [Concomitant]
     Active Substance: ATORVASTATIN
     Indication: CORONARY ARTERY DISEASE
     Dosage: UNK UNK, QD
     Route: 048
  7. ENTRESTO [Suspect]
     Active Substance: SACUBITRIL\VALSARTAN
     Indication: CARDIAC FAILURE
     Dosage: 50 MG, BID
     Route: 048
     Dates: start: 20151230, end: 20160113
  8. COREG [Concomitant]
     Active Substance: CARVEDILOL
     Indication: CARDIAC FAILURE
     Dosage: UNK UNK, BID
     Route: 048

REACTIONS (2)
  - Product use issue [Unknown]
  - Diarrhoea [Recovered/Resolved]

NARRATIVE: CASE EVENT DATE: 20151230
